FAERS Safety Report 17010809 (Version 1)
Quarter: 2019Q4

REPORT INFORMATION
  Report Type: Spontaneous
  Country: US (occurrence: US)
  Receive Date: 20191107
  Receipt Date: 20191107
  Transmission Date: 20200122
  Serious: Yes (Hospitalization)
  Sender: FDA-Public Use
  Company Number: None

PATIENT
  Age: 57 Year
  Sex: Female

DRUGS (4)
  1. COSENTYX [Suspect]
     Active Substance: SECUKINUMAB
     Indication: PSORIASIS
     Dosage: ?          OTHER FREQUENCY:EVERY 4 WEEKS;?
     Route: 058
     Dates: start: 20190723
  2. DESONIDE. [Concomitant]
     Active Substance: DESONIDE
  3. RALOXIFENE. [Concomitant]
     Active Substance: RALOXIFENE
  4. NATURE-THROI [Concomitant]

REACTIONS (2)
  - Sinusitis [None]
  - Headache [None]
